FAERS Safety Report 15173163 (Version 1)
Quarter: 2018Q3

REPORT INFORMATION
  Report Type: Report from Study
  Country: BR (occurrence: BR)
  Receive Date: 20180720
  Receipt Date: 20180720
  Transmission Date: 20181010
  Serious: Yes (Hospitalization, Other)
  Sender: FDA-Public Use
  Company Number: BR-UCBSA-2017036543

PATIENT
  Age: 45 Year
  Sex: Female
  Weight: 61 kg

DRUGS (2)
  1. CERTOLIZUMAB PEGOL [Suspect]
     Active Substance: CERTOLIZUMAB PEGOL
     Dosage: 200 MG, EV 2 WEEKS(QOW)
     Dates: start: 2017, end: 201710
  2. CERTOLIZUMAB PEGOL [Suspect]
     Active Substance: CERTOLIZUMAB PEGOL
     Indication: ANKYLOSING SPONDYLITIS
     Dosage: 400 MG, EV 2 WEEKS(QOW)
     Dates: start: 20170721, end: 2017

REACTIONS (10)
  - Musculoskeletal chest pain [Recovered/Resolved]
  - Eye swelling [Recovering/Resolving]
  - Injection site haematoma [Recovered/Resolved]
  - Needle issue [Unknown]
  - Systemic lupus erythematosus [Unknown]
  - Injection site pain [Recovered/Resolved]
  - Hypersensitivity [Recovering/Resolving]
  - Dermatophytosis [Not Recovered/Not Resolved]
  - Urinary tract infection [Recovered/Resolved]
  - Injection site injury [Recovered/Resolved]

NARRATIVE: CASE EVENT DATE: 20170721
